FAERS Safety Report 9913508 (Version 1)
Quarter: 2014Q1

REPORT INFORMATION
  Report Type: Spontaneous
  Country: FR (occurrence: None)
  Receive Date: 20140218
  Receipt Date: 20140218
  Transmission Date: 20141002
  Serious: Yes (Other)
  Sender: FDA-Public Use
  Company Number: ABR_01490_2014

PATIENT
  Age: 47 Year
  Sex: Female

DRUGS (2)
  1. GLIADEL [Suspect]
     Indication: ANAPLASTIC OLIGODENDROGLIOMA
     Dosage: DF
  2. RADIO-CHEMOTHERAPY [Suspect]
     Indication: ANAPLASTIC OLIGODENDROGLIOMA
     Dosage: DF

REACTIONS (3)
  - Ischaemic stroke [None]
  - Angiopathy [None]
  - Toxicity to various agents [None]
